FAERS Safety Report 7299087-0 (Version None)
Quarter: 2011Q1

REPORT INFORMATION
  Report Type: 
  Country: None (occurrence: None)
  Receive Date: 20110217
  Receipt Date: 20110209
  Transmission Date: 20110831
  Serious: Yes (Hospitalization)
  Sender: FDA-Public Use
  Company Number: IT-BRISTOL-MYERS SQUIBB COMPANY-15410772

PATIENT
  Age: 68 Year
  Sex: Female

DRUGS (2)
  1. ERBITUX [Suspect]
     Indication: COLON CANCER
     Dosage: RECENT INF ON 19OCT10; INTERRUPTED ON 19OCT10, 14 DAYS.
     Route: 042
     Dates: start: 20101005
  2. IRINOTECAN HCL [Concomitant]
     Indication: COLON CANCER
     Route: 042
     Dates: start: 20101005, end: 20101019

REACTIONS (4)
  - DECREASED APPETITE [None]
  - PARAESTHESIA [None]
  - DIARRHOEA [None]
  - ASTHENIA [None]
